FAERS Safety Report 5294731-1 (Version None)
Quarter: 2007Q2

REPORT INFORMATION
  Report Type: 
  Country: None (occurrence: None)
  Receive Date: 20070409
  Receipt Date: 20070409
  Transmission Date: 20071010
  Serious: Yes (Hospitalization)
  Sender: FDA-Public Use
  Company Number: None

PATIENT
  Sex: Male
  Weight: 71.2147 kg

DRUGS (18)
  1. CYCLOPHOSPHAMIDE [Suspect]
     Indication: PROSTATE CANCER
     Dosage: 100 MG QD X14DAY Q 28 DAY PO
     Route: 048
     Dates: start: 20070104, end: 20070315
  2. ETOPOSIDE [Suspect]
     Indication: PROSTATE CANCER
     Dosage: 100 MG QD X14DAY Q 28DAY PO
     Route: 048
     Dates: start: 20070104, end: 20070316
  3. AMBIEN [Concomitant]
  4. PHENERGAN HCL [Concomitant]
  5. ASPIRIN [Concomitant]
  6. OXYCODONE HCL [Concomitant]
  7. OXYCONTIN [Concomitant]
  8. AVANDIA [Concomitant]
  9. GLIMEPIRIDE [Concomitant]
  10. METFORMIN HCL [Concomitant]
  11. LOTREL [Concomitant]
  12. ZOCOR [Concomitant]
  13. LEXAPRO [Concomitant]
  14. PROTONIX [Concomitant]
  15. REGLAN [Concomitant]
  16. LACTULOS [Concomitant]
  17. LASIX [Concomitant]
  18. KLOR-CON [Concomitant]

REACTIONS (2)
  - NEUTROPENIA [None]
  - THROMBOCYTOPENIA [None]
